FAERS Safety Report 4539241-1 (Version None)
Quarter: 2004Q4

REPORT INFORMATION
  Report Type: 
  Country: None (occurrence: None)
  Receive Date: 20041228
  Receipt Date: 20041216
  Transmission Date: 20050328
  Serious: Yes (Other)
  Sender: FDA-Public Use
  Company Number: BE-JNJFOC-20041204807

PATIENT
  Age: 43 Year
  Sex: Male

DRUGS (1)
  1. REMICADE [Suspect]
     Indication: ANKYLOSING SPONDYLITIS
     Dosage: INFUSIONS GIVEN ON WEEKS 0, 2, 6 AND THEN EVERY 8 WEEKS.
     Route: 042

REACTIONS (1)
  - TOXIC SKIN ERUPTION [None]
